FAERS Safety Report 10003692 (Version 1)
Quarter: 2014Q1

REPORT INFORMATION
  Report Type: Spontaneous
  Country: US (occurrence: US)
  Receive Date: 20140312
  Receipt Date: 20140312
  Transmission Date: 20141002
  Serious: No
  Sender: FDA-Public Use
  Company Number: US-009507513-1402USA013376

PATIENT
  Age: 18 Year
  Sex: Female
  Weight: 113.38 kg

DRUGS (1)
  1. NEXPLANON [Suspect]
     Indication: CONTRACEPTION
     Dosage: LEFT INNER ARM
     Route: 059
     Dates: start: 20140225

REACTIONS (2)
  - Implant site irritation [Unknown]
  - Implant site bruising [Unknown]
